FAERS Safety Report 4610369-0 (Version None)
Quarter: 2005Q1

REPORT INFORMATION
  Report Type: 
  Country: None (occurrence: None)
  Receive Date: 20050314
  Receipt Date: 20050301
  Transmission Date: 20050727
  Serious: Yes (Other)
  Sender: FDA-Public Use
  Company Number: MED000042

PATIENT
  Age: 18 Year
  Sex: Female
  Weight: 52.6173 kg

DRUGS (2)
  1. SODIUM CITRATE [Suspect]
     Indication: PLASMAPHERESIS
     Dosage: ONCE; INTRAVENOUS
     Route: 042
     Dates: start: 20050228, end: 20050228
  2. SODIUM CHLORIDE 0.9% [Suspect]
     Indication: PLASMAPHERESIS
     Dosage: ONCE; INTRAVENOUS
     Route: 042
     Dates: start: 20050228, end: 20050228

REACTIONS (10)
  - ASTHENIA [None]
  - DIZZINESS [None]
  - FLUSHING [None]
  - HYPOAESTHESIA ORAL [None]
  - JAW DISORDER [None]
  - MUSCLE SPASMS [None]
  - MUSCLE TWITCHING [None]
  - PALLOR [None]
  - PARAESTHESIA [None]
  - VISION BLURRED [None]
